FAERS Safety Report 18009093 (Version 1)
Quarter: 2020Q3

REPORT INFORMATION
  Report Type: Spontaneous
  Country: US (occurrence: US)
  Receive Date: 20200710
  Receipt Date: 20200710
  Transmission Date: 20201103
  Serious: No
  Sender: FDA-Public Use
  Company Number: US-SAOL THERAPEUTICS-2020SAO00014

PATIENT
  Age: 24 Year
  Sex: Male

DRUGS (2)
  1. LIORESAL [Suspect]
     Active Substance: BACLOFEN
     Dosage: 854.3 ?G, \DAY
     Route: 037
  2. LIORESAL [Suspect]
     Active Substance: BACLOFEN
     Dosage: 50 ?G, BOLUS
     Dates: start: 20200108, end: 20200108

REACTIONS (5)
  - Muscle rigidity [Recovered/Resolved]
  - Unevaluable event [Unknown]
  - Therapy non-responder [Recovered/Resolved]
  - Device issue [Unknown]
  - Muscle contracture [Recovered/Resolved]

NARRATIVE: CASE EVENT DATE: 20191201
